FAERS Safety Report 22205418 (Version 1)
Quarter: 2023Q2

REPORT INFORMATION
  Report Type: Spontaneous
  Country: GB (occurrence: GB)
  Receive Date: 20230413
  Receipt Date: 20230413
  Transmission Date: 20230722
  Serious: Yes (Other)
  Sender: FDA-Public Use
  Company Number: None

PATIENT
  Age: 83 Year
  Sex: Male
  Weight: 100 kg

DRUGS (12)
  1. XARELTO [Suspect]
     Active Substance: RIVAROXABAN
     Indication: Product used for unknown indication
     Dosage: 20 MG, QD
     Route: 048
     Dates: start: 20220222
  2. ALLOPURINOL [Concomitant]
     Active Substance: ALLOPURINOL
     Dosage: 1 DF, QD
     Dates: start: 20210218
  3. AMITRIPTYLINE HYDROCHLORIDE [Concomitant]
     Active Substance: AMITRIPTYLINE HYDROCHLORIDE
     Dosage: 3 DF, QD
     Dates: start: 20210218
  4. AMLODIPINE [Concomitant]
     Active Substance: AMLODIPINE BESYLATE
     Dosage: 1 DF, QD
     Dates: start: 20210218
  5. ATENOLOL [Concomitant]
     Active Substance: ATENOLOL
     Dosage: 1 DF, QD
     Dates: start: 20210218
  6. BENDROFLUMETHIAZIDE [Concomitant]
     Active Substance: BENDROFLUMETHIAZIDE
     Dosage: 1 DF, QD
     Dates: start: 20210218
  7. COCODAMOL [Concomitant]
     Active Substance: ACETAMINOPHEN\CODEINE PHOSPHATE
     Dosage: 2 DF, QID
     Dates: start: 20210218
  8. DOXAZOSIN [Concomitant]
     Active Substance: DOXAZOSIN MESYLATE
     Dosage: 1 DF, QD
     Dates: start: 20210218
  9. GABAPENTIN [Concomitant]
     Active Substance: GABAPENTIN
     Dosage: 1 DF, BID
     Dates: start: 20210901
  10. ACETAMINOPHEN [Concomitant]
     Active Substance: ACETAMINOPHEN
     Dosage: 2 DF, QID
     Dates: start: 20210218
  11. SIMVASTATIN [Concomitant]
     Active Substance: SIMVASTATIN
     Dosage: 1 DF, QD
     Dates: start: 20210218
  12. WARFARIN SODIUM [Concomitant]
     Active Substance: WARFARIN SODIUM
     Dates: start: 20210218

REACTIONS (3)
  - Tachycardia [Recovered/Resolved]
  - Limb discomfort [Recovered/Resolved]
  - Malaise [Recovered/Resolved]

NARRATIVE: CASE EVENT DATE: 20220322
